FAERS Safety Report 13472435 (Version 1)
Quarter: 2017Q2

REPORT INFORMATION
  Report Type: Spontaneous
  Country: US (occurrence: US)
  Receive Date: 20170424
  Receipt Date: 20170424
  Transmission Date: 20170830
  Serious: No
  Sender: FDA-Public Use
  Company Number: None

PATIENT
  Age: 16 Year
  Sex: Female

DRUGS (1)
  1. ORKAMBI [Suspect]
     Active Substance: IVACAFTOR\LUMACAFTOR
     Indication: CYSTIC FIBROSIS
     Dosage: 1 TABLET Q12O  PO
     Route: 048
     Dates: start: 201507, end: 201703

REACTIONS (2)
  - Headache [None]
  - Chest discomfort [None]

NARRATIVE: CASE EVENT DATE: 20170411
